FAERS Safety Report 10047173 (Version 1)
Quarter: 2014Q1

REPORT INFORMATION
  Report Type: Spontaneous
  Country: US (occurrence: US)
  Receive Date: 20140331
  Receipt Date: 20140331
  Transmission Date: 20141002
  Serious: No
  Sender: FDA-Public Use
  Company Number: US-MYLANLABS-2013S1015864

PATIENT
  Age: 76 Year
  Sex: Female

DRUGS (3)
  1. FENTANYL TRANSDERMAL SYSTEM [Suspect]
     Indication: BACK PAIN
     Dosage: Q72H
     Route: 062
  2. ALEVE [Suspect]
     Indication: BACK PAIN
     Route: 048
     Dates: start: 201301
  3. OXYCODONE [Concomitant]
     Indication: BACK PAIN
     Dates: start: 2010

REACTIONS (1)
  - Contusion [Not Recovered/Not Resolved]
